FAERS Safety Report 24298734 (Version 1)
Quarter: 2024Q3

REPORT INFORMATION
  Report Type: Spontaneous
  Country: US (occurrence: None)
  Receive Date: 20240907
  Receipt Date: 20240907
  Transmission Date: 20241017
  Serious: Yes (Hospitalization)
  Sender: Public
  Company Number: None

PATIENT
  Age: 55 Year
  Sex: Female
  Weight: 83.9 kg

DRUGS (1)
  1. XELODA [Suspect]
     Active Substance: CAPECITABINE

REACTIONS (8)
  - Acne [None]
  - Ear pain [None]
  - Pain [None]
  - Facial paralysis [None]
  - Odynophagia [None]
  - Gastrooesophageal reflux disease [None]
  - Vertigo [None]
  - Headache [None]

NARRATIVE: CASE EVENT DATE: 20240901
